FAERS Safety Report 4996367-6 (Version None)
Quarter: 2006Q2

REPORT INFORMATION
  Report Type: 
  Country: None (occurrence: None)
  Receive Date: 20060509
  Receipt Date: 20060503
  Transmission Date: 20061013
  Serious: Yes (Other)
  Sender: FDA-Public Use
  Company Number: US-JNJFOC-20060501293

PATIENT
  Sex: Male
  Weight: 72.58 kg

DRUGS (6)
  1. LEVAQUIN [Suspect]
     Route: 048
  2. SYNTHROID [Concomitant]
     Indication: HYPOTHYROIDISM
  3. TOPORIL XL [Concomitant]
  4. LIPITOR [Concomitant]
  5. NIACIN [Concomitant]
  6. PROSCAR [Concomitant]

REACTIONS (1)
  - DIPLOPIA [None]
